FAERS Safety Report 4772523-7 (Version None)
Quarter: 2005Q3

REPORT INFORMATION
  Report Type: 
  Country: None (occurrence: None)
  Receive Date: 20050919
  Receipt Date: 20050909
  Transmission Date: 20060218
  Serious: Yes (Hospitalization)
  Sender: FDA-Public Use
  Company Number: PHBS2005JP13283

PATIENT
  Age: 85 Year
  Sex: Female

DRUGS (2)
  1. VOLTAREN [Suspect]
     Indication: BACK INJURY
     Dosage: 25 MG, ONCE/SINGLE
     Route: 054
     Dates: start: 20050908, end: 20050908
  2. LOXONIN [Concomitant]
     Route: 048

REACTIONS (3)
  - HYPOTENSION [None]
  - MALAISE [None]
  - SHOCK [None]
